FAERS Safety Report 15641228 (Version 1)
Quarter: 2018Q4

REPORT INFORMATION
  Report Type: Spontaneous
  Country: US (occurrence: US)
  Receive Date: 20181120
  Receipt Date: 20181120
  Transmission Date: 20190205
  Serious: No
  Sender: FDA-Public Use
  Company Number: US-BIOVERATIV-2018BV000807

PATIENT
  Age: 38 Year
  Sex: Male

DRUGS (1)
  1. ALPROLIX [Suspect]
     Active Substance: EFTRENONACOG ALFA
     Indication: FACTOR IX DEFICIENCY
     Route: 042

REACTIONS (2)
  - Mouth haemorrhage [Not Recovered/Not Resolved]
  - Wisdom teeth removal [Recovered/Resolved]

NARRATIVE: CASE EVENT DATE: 20181109
